FAERS Safety Report 7299257-1 (Version None)
Quarter: 2011Q1

REPORT INFORMATION
  Report Type: 
  Country: None (occurrence: None)
  Receive Date: 20110217
  Receipt Date: 20110215
  Transmission Date: 20110831
  Serious: Yes (Hospitalization)
  Sender: FDA-Public Use
  Company Number: US-MERCK-1101USA01289

PATIENT
  Age: 10 Year
  Sex: Male

DRUGS (3)
  1. SINGULAIR [Suspect]
     Route: 048
     Dates: start: 20100101, end: 20100101
  2. SINGULAIR [Suspect]
     Indication: ASTHMA
     Route: 048
     Dates: start: 20100101, end: 20100101
  3. SYMBICORT [Concomitant]
     Route: 065
     Dates: end: 20100101

REACTIONS (7)
  - ASTHMA [None]
  - HALLUCINATION, AUDITORY [None]
  - HALLUCINATION, VISUAL [None]
  - INSOMNIA [None]
  - OVERDOSE [None]
  - FATIGUE [None]
  - NIGHTMARE [None]
